FAERS Safety Report 8846128 (Version 2)
Quarter: 2013Q1

REPORT INFORMATION
  Report Type: Spontaneous
  Country: JP (occurrence: JP)
  Receive Date: 20121017
  Receipt Date: 20130125
  Transmission Date: 20140127
  Serious: Yes (Other)
  Sender: FDA-Public Use
  Company Number: JP-009507513-1206USA04728

PATIENT
  Age: 55 Year
  Sex: Female

DRUGS (15)
  1. FOSAPREPITANT DIMEGLUMINE [Suspect]
     Indication: PROPHYLAXIS OF NAUSEA AND VOMITING
     Dosage: 150 MG, QD
     Route: 041
     Dates: start: 20120305, end: 20120305
  2. FOSAPREPITANT DIMEGLUMINE [Suspect]
     Dosage: 150 MG, QD
     Route: 041
     Dates: start: 20120326, end: 20120326
  3. FOSAPREPITANT DIMEGLUMINE [Suspect]
     Dosage: 150 MG, QD
     Route: 041
     Dates: start: 20120416, end: 20120416
  4. ALOXI [Concomitant]
     Dosage: UNK
     Dates: start: 20120305, end: 20120305
  5. ALOXI [Concomitant]
     Dosage: UNK
     Dates: start: 20120326, end: 20120326
  6. ALOXI [Concomitant]
     Dosage: UNK
     Dates: start: 20120416, end: 20120416
  7. DECADRON (DEXAMETHASONE SODIUM PHOSPHATE) [Concomitant]
     Dosage: UNK
     Dates: start: 20120305, end: 20120305
  8. DECADRON (DEXAMETHASONE SODIUM PHOSPHATE) [Concomitant]
     Dosage: UNK
     Dates: start: 20120326, end: 20120326
  9. DECADRON (DEXAMETHASONE SODIUM PHOSPHATE) [Concomitant]
     Dosage: UNK
     Dates: start: 20120416, end: 20120416
  10. FARMORUBICIN [Concomitant]
     Indication: BREAST CANCER
     Dosage: UNK
     Dates: start: 20120305, end: 20120305
  11. FARMORUBICIN [Concomitant]
     Dosage: UNK
     Dates: start: 20120326, end: 20120326
  12. FARMORUBICIN [Concomitant]
     Dosage: UNK
     Dates: start: 20120416, end: 20120416
  13. ENDOXAN [Concomitant]
     Indication: BREAST CANCER
     Dosage: UNK
     Dates: start: 20120305, end: 20120305
  14. ENDOXAN [Concomitant]
     Dosage: UNK
     Dates: start: 20120326, end: 20120326
  15. ENDOXAN [Concomitant]
     Dosage: UNK
     Dates: start: 20120416, end: 20120416

REACTIONS (3)
  - Injection site induration [Recovered/Resolved]
  - Injection site pain [Recovered/Resolved]
  - Injection site phlebitis [Recovered/Resolved]
